FAERS Safety Report 8100669-4 (Version None)
Quarter: 2012Q1

REPORT INFORMATION
  Report Type: 
  Country: None (occurrence: None)
  Receive Date: 20120129
  Receipt Date: 20111202
  Transmission Date: 20120608
  Serious: No
  Sender: FDA-Public Use
  Company Number: US-ABBOTT-11P-163-0705162-00

PATIENT
  Age: 47 Year
  Sex: Female

DRUGS (4)
  1. ULTRAM [Concomitant]
     Indication: PAIN
  2. WELCHOL [Concomitant]
     Indication: CROHN'S DISEASE
  3. HUMIRA [Suspect]
     Indication: CROHN'S DISEASE
     Dates: start: 20101001
  4. HYOSCYAMINE [Concomitant]
     Indication: ABDOMINAL PAIN UPPER
     Dosage: ONE TO TWO TIMES DAY

REACTIONS (5)
  - STOMATITIS [None]
  - COUGH [None]
  - SNEEZING [None]
  - ORAL PAIN [None]
  - NASOPHARYNGITIS [None]
